FAERS Safety Report 9105514 (Version 2)
Quarter: 2013Q1

REPORT INFORMATION
  Report Type: Spontaneous
  Country: CA (occurrence: CA)
  Receive Date: 20130220
  Receipt Date: 20130304
  Transmission Date: 20140127
  Serious: No
  Sender: FDA-Public Use
  Company Number: PHHY2013CA015278

PATIENT
  Age: 72 Year
  Sex: Male

DRUGS (3)
  1. METOPROLOL [Suspect]
     Indication: CARDIAC FAILURE
     Dosage: 200 MG, DAILY
  2. RAMIPRIL [Concomitant]
     Indication: HYPERTENSION
     Dosage: 10 MG, QD
  3. WARFARIN [Concomitant]
     Indication: ANTICOAGULANT THERAPY
     Dosage: UNK UKN, UNK

REACTIONS (1)
  - Drug ineffective [Unknown]
